FAERS Safety Report 7609249-8 (Version None)
Quarter: 2011Q3

REPORT INFORMATION
  Report Type: 
  Country: None (occurrence: None)
  Receive Date: 20110714
  Receipt Date: 20110712
  Transmission Date: 20111222
  Serious: Yes (Death, Other)
  Sender: FDA-Public Use
  Company Number: US-ELI_LILLY_AND_COMPANY-US201107003312

PATIENT
  Age: 57 Year
  Sex: Female

DRUGS (4)
  1. METOPROLOL TARTRATE [Concomitant]
     Dosage: UNK, UNKNOWN
     Route: 065
  2. TRICOR [Concomitant]
     Dosage: UNK, UNKNOWN
     Route: 065
  3. EFFIENT [Suspect]
     Dosage: 10 MG, QD
     Route: 065
     Dates: start: 20100611
  4. CRESTOR [Concomitant]
     Dosage: UNK, UNKNOWN
     Route: 065

REACTIONS (3)
  - HEPATIC FAILURE [None]
  - CARDIAC FAILURE [None]
  - RENAL FAILURE [None]
